FAERS Safety Report 10683034 (Version 1)
Quarter: 2014Q4

REPORT INFORMATION
  Report Type: Spontaneous
  Country: US (occurrence: None)
  Receive Date: 20141217
  Receipt Date: 20141217
  Transmission Date: 20150529
  Serious: Yes (Other)
  Sender: FDA-Public Use
  Company Number: TPA2010A04489

PATIENT
  Age: 56 Year
  Sex: Female

DRUGS (9)
  1. DEXILANT [Suspect]
     Active Substance: DEXLANSOPRAZOLE
     Indication: ABDOMINAL PAIN
     Route: 048
     Dates: start: 20100412, end: 20100502
  2. TRAMADOL [Concomitant]
     Active Substance: TRAMADOL
  3. COZAAR [Concomitant]
     Active Substance: LOSARTAN POTASSIUM
  4. SYNTHROID [Concomitant]
     Active Substance: LEVOTHYROXINE SODIUM
  5. FIORICET (CAFFEINE, BUTALBITAL, PARACETAMOL) [Concomitant]
  6. TRANXENE (CLORAZEPATE DIPOTASSIUM) (CAPSULES) (CLORAZEPATE DIPOTASSIUM) [Concomitant]
     Active Substance: CLORAZEPATE DIPOTASSIUM
  7. PREVACID [Suspect]
     Active Substance: LANSOPRAZOLE
     Indication: ABDOMINAL PAIN
     Route: 048
     Dates: start: 201004, end: 20100412
  8. ADVAIR (FLUTICASONE PROPIONATE. SALMETEROL XINAFOATE) [Concomitant]
  9. ALBUTEROL (SALBUTEROL) [Concomitant]

REACTIONS (6)
  - Anaphylactoid reaction [None]
  - Urticaria [None]
  - Wheezing [None]
  - Rash erythematous [None]
  - Dyspnoea [None]
  - Pruritus [None]

NARRATIVE: CASE EVENT DATE: 20100423
